FAERS Safety Report 20851161 (Version 1)
Quarter: 2022Q2

REPORT INFORMATION
  Report Type: Spontaneous
  Country: US (occurrence: US)
  Receive Date: 20220519
  Receipt Date: 20220519
  Transmission Date: 20220721
  Serious: Yes (Other)
  Sender: FDA-Public Use
  Company Number: US-VERTEX PHARMACEUTICALS-2021-018381

PATIENT

DRUGS (2)
  1. TRIKAFTA [Suspect]
     Active Substance: ELEXACAFTOR\IVACAFTOR\TEZACAFTOR
     Indication: Cystic fibrosis
     Dosage: UNK FREQUENCY
     Route: 048
  2. PREDNISONE [Concomitant]
     Active Substance: PREDNISONE
     Dosage: UNK

REACTIONS (21)
  - Hypertransaminasaemia [Unknown]
  - Abdominal pain [Unknown]
  - Nausea [Unknown]
  - Lung transplant rejection [Unknown]
  - Sinus disorder [Unknown]
  - Respiratory tract congestion [Unknown]
  - Affective disorder [Unknown]
  - Vomiting [Unknown]
  - Cough [Unknown]
  - Weight increased [Unknown]
  - Dyspnoea [Unknown]
  - Drug ineffective [Unknown]
  - Diarrhoea [Unknown]
  - Feeling abnormal [Unknown]
  - Transplant [Unknown]
  - Headache [Unknown]
  - Peripheral swelling [Unknown]
  - Rash [Unknown]
  - Fatigue [Unknown]
  - Blood glucose fluctuation [Unknown]
  - Alopecia [Unknown]
